FAERS Safety Report 4827912-9 (Version None)
Quarter: 2005Q4

REPORT INFORMATION
  Report Type: 
  Country: None (occurrence: None)
  Receive Date: 20051110
  Receipt Date: 20051031
  Transmission Date: 20060501
  Serious: Yes (Life-Threatening, Other)
  Sender: FDA-Public Use
  Company Number: 200514382BCC

PATIENT
  Age: 64 Year
  Sex: Male
  Weight: 110.0426 kg

DRUGS (31)
  1. ASPIRIN [Suspect]
     Indication: CARDIAC DISORDER
     Dosage: 325 MG, QD, ORAL
     Route: 048
     Dates: start: 20050304, end: 20050306
  2. ASPIRIN [Suspect]
     Indication: PROPHYLAXIS
     Dosage: 325 MG, QD, ORAL
     Route: 048
     Dates: start: 20050304, end: 20050306
  3. NICARDIPINE HCL [Suspect]
     Indication: HYPERTENSION
     Dosage: 0.416 MG, TOTAL DAILY, INTRAVENOUS
     Route: 042
     Dates: start: 20050308
  4. LOVENOX [Suspect]
     Indication: DEEP VEIN THROMBOSIS
     Dosage: 120 MG, BID, SUBCUTANEOUS
     Route: 058
     Dates: start: 20050304, end: 20050306
  5. LOVENOX [Suspect]
     Indication: PROPHYLAXIS
     Dosage: 120 MG, BID, SUBCUTANEOUS
     Route: 058
     Dates: start: 20050304, end: 20050306
  6. HEPARIN [Suspect]
     Indication: VASCULAR BYPASS GRAFT
     Dosage: 39900 U, TOTAL DAILY, INTRAVENOUS DRIP
     Route: 041
     Dates: start: 20050307, end: 20050308
  7. INTEGRILIN [Concomitant]
  8. PREVACID [Concomitant]
  9. LISINOPRIL [Concomitant]
  10. LOPRESSOR [Concomitant]
  11. LORTAB [Concomitant]
  12. MAALOX FAST BLOCKER [Concomitant]
  13. IMDUR [Concomitant]
  14. NITROGLYCERIN [Concomitant]
  15. MUCOMYST [Concomitant]
  16. BREVIBLOC [Concomitant]
  17. MUPIROCIN [Concomitant]
  18. MORPHINE [Concomitant]
  19. ZYLOPRIM [Concomitant]
  20. LASIX [Concomitant]
  21. SODIUM BICARBONATE [Concomitant]
  22. ANCEF [Concomitant]
  23. POTASSIUM CHLORIDE [Concomitant]
  24. INSULIN [Concomitant]
  25. SUFENTA [Concomitant]
  26. VERSED [Concomitant]
  27. VECURONIUM BROMIDE [Concomitant]
  28. SUCCINYLCHOLINE CHLORIDE [Concomitant]
  29. LIDOCAINE [Concomitant]
  30. MANNITOL [Concomitant]
  31. AMICAR [Concomitant]

REACTIONS (3)
  - BLOOD PRESSURE SYSTOLIC DECREASED [None]
  - HEART RATE INCREASED [None]
  - POST PROCEDURAL HAEMORRHAGE [None]
